FAERS Safety Report 21151334 (Version 2)
Quarter: 2022Q3

REPORT INFORMATION
  Report Type: Spontaneous
  Country: UY (occurrence: None)
  Receive Date: 20220730
  Receipt Date: 20220824
  Transmission Date: 20221027
  Serious: Yes (Other)
  Sender: FDA-Public Use
  Company Number: UY-ROCHE-3150349

PATIENT
  Sex: Female
  Weight: 65 kg

DRUGS (8)
  1. RITUXIMAB [Suspect]
     Active Substance: RITUXIMAB
     Indication: Non-Hodgkin^s lymphoma
     Dosage: 6 CYCLES
     Route: 042
     Dates: start: 202007, end: 202011
  2. RITUXIMAB [Suspect]
     Active Substance: RITUXIMAB
     Indication: Diffuse large B-cell lymphoma
  3. CYCLOPHOSPHAMIDE\DOXORUBICIN\PREDNISONE\VINCRISTINE [Concomitant]
     Active Substance: CYCLOPHOSPHAMIDE\DOXORUBICIN\PREDNISONE\VINCRISTINE
     Dosage: DOSE AND FREQUENCY WERE NOT REPORTED
     Dates: start: 202007, end: 202011
  4. GEMCITABINE [Concomitant]
     Active Substance: GEMCITABINE
  5. CISPLATIN [Concomitant]
     Active Substance: CISPLATIN
  6. DEXAMETHASONE [Concomitant]
     Active Substance: DEXAMETHASONE
  7. ETOPOSIDE [Concomitant]
     Active Substance: ETOPOSIDE
  8. CYTARABINE [Concomitant]
     Active Substance: CYTARABINE

REACTIONS (2)
  - Disease progression [Not Recovered/Not Resolved]
  - Therapeutic product effect incomplete [Unknown]
